FAERS Safety Report 9257548 (Version 2)
Quarter: 2013Q2

REPORT INFORMATION
  Report Type: Spontaneous
  Country: JP (occurrence: JP)
  Receive Date: 20130426
  Receipt Date: 20130426
  Transmission Date: 20140414
  Serious: Yes (Hospitalization, Other)
  Sender: FDA-Public Use
  Company Number: JP-JNJFOC-20130411881

PATIENT
  Age: 81 Year
  Sex: Female

DRUGS (8)
  1. REMINYL [Suspect]
     Indication: DEMENTIA
     Route: 048
     Dates: end: 2013
  2. REMINYL [Suspect]
     Indication: DEMENTIA
     Route: 048
     Dates: start: 2013
  3. QUETIAPINE FUMARATE [Suspect]
     Indication: BEHAVIOURAL AND PSYCHIATRIC SYMPTOMS OF DEMENTIA
     Route: 048
     Dates: end: 20130221
  4. QUETIAPINE FUMARATE [Suspect]
     Indication: BEHAVIOURAL AND PSYCHIATRIC SYMPTOMS OF DEMENTIA
     Route: 048
     Dates: start: 20130222, end: 20130228
  5. MEMANTINE HYDROCHLORIDE [Concomitant]
     Indication: DEMENTIA
     Route: 048
     Dates: end: 20130228
  6. DAI-KENCHU-TO [Concomitant]
     Route: 048
     Dates: end: 20130228
  7. MYSLEE [Concomitant]
     Route: 048
     Dates: end: 20130228
  8. NEXIUM [Concomitant]
     Route: 048
     Dates: end: 20130228

REACTIONS (1)
  - Neuroleptic malignant syndrome [Recovered/Resolved]
